FAERS Safety Report 8770378 (Version 3)
Quarter: 2012Q4

REPORT INFORMATION
  Report Type: 
  Country: ES (occurrence: ES)
  Receive Date: 20120906
  Receipt Date: 20121206
  Transmission Date: 20130627
  Serious: Yes (Death, Hospitalization, Other)
  Sender: FDA-Public Use
  Company Number: ES-GENZYME-THYM-1003404

PATIENT
  Age: 32 Year
  Sex: Female
  Weight: 70 kg

DRUGS (6)
  1. THYMOGLOBULINE [Suspect]
     Indication: BONE MARROW CONDITIONING REGIMEN
     Dosage: 190 mg, qd
     Route: 042
     Dates: start: 20110612, end: 20110614
  2. FLUDARA [Suspect]
     Indication: BONE MARROW CONDITIONING REGIMEN
     Dosage: 57 mg, qd
     Route: 042
     Dates: start: 20110611, end: 20110614
  3. CYCLOPHOSPHAMIDE [Concomitant]
     Indication: BONE MARROW CONDITIONING REGIMEN
     Dosage: 3790 mg, qd
     Route: 042
     Dates: start: 20110611, end: 20110612
  4. TACROLIMUS [Concomitant]
     Indication: PROPHYLAXIS AGAINST GRAFT VERSUS HOST DISEASE
     Dosage: UNK
     Route: 065
  5. TACROLIMUS [Concomitant]
     Dosage: Dose reduced, UNK
     Route: 065
  6. METHOTREXATE [Concomitant]
     Indication: PROPHYLAXIS AGAINST GRAFT VERSUS HOST DISEASE
     Dosage: UNK
     Route: 065

REACTIONS (11)
  - Odynophagia [Unknown]
  - Encephalopathy [Unknown]
  - Renal failure [Unknown]
  - Hepatic function abnormal [Unknown]
  - Lymphadenopathy [Unknown]
  - Lymphadenopathy [Unknown]
  - Lymphadenopathy [Unknown]
  - Post transplant lymphoproliferative disorder [Fatal]
  - Dysphagia [Unknown]
  - Pyrexia [Unknown]
  - Graft versus host disease in intestine [Recovered/Resolved]
